FAERS Safety Report 6326970-2 (Version None)
Quarter: 2009Q3

REPORT INFORMATION
  Report Type: 
  Country: None (occurrence: None)
  Receive Date: 20090825
  Receipt Date: 20090818
  Transmission Date: 20100115
  Serious: Yes (Other)
  Sender: FDA-Public Use
  Company Number: US-TEVA-206449USA

PATIENT
  Sex: Female
  Weight: 68.1 kg

DRUGS (5)
  1. AMPHETAMINES [Suspect]
     Indication: DEPRESSION
     Route: 048
     Dates: start: 20090101, end: 20090718
  2. FUROSEMIDE [Concomitant]
     Indication: FLUID RETENTION
  3. DIGOXIN [Concomitant]
  4. LACTULOSE [Concomitant]
     Indication: CONSTIPATION
  5. AMITIZA [Concomitant]
     Indication: CONSTIPATION

REACTIONS (17)
  - AGITATION [None]
  - ANGER [None]
  - ASTHENIA [None]
  - CONFUSIONAL STATE [None]
  - DEPRESSION [None]
  - DISTURBANCE IN ATTENTION [None]
  - EYE PAIN [None]
  - FEELING ABNORMAL [None]
  - HEADACHE [None]
  - HYPERHIDROSIS [None]
  - HYPOKINESIA [None]
  - OEDEMA PERIPHERAL [None]
  - PAIN [None]
  - PAIN IN EXTREMITY [None]
  - SLEEP DISORDER [None]
  - SUICIDAL IDEATION [None]
  - TREMOR [None]
